FAERS Safety Report 9842530 (Version 1)
Quarter: 2013Q4

REPORT INFORMATION
  Report Type: Spontaneous
  Country: US (occurrence: None)
  Receive Date: 20131219
  Receipt Date: 20131219
  Transmission Date: 20140711
  Serious: Yes (Other)
  Sender: FDA-Public Use
  Company Number: 163-20785-13010290

PATIENT
  Age: 59 Year
  Sex: Male

DRUGS (7)
  1. THALOMID (THALIDOMIDE) (CAPSULES) [Suspect]
     Indication: PLASMA CELL MYELOMA
     Dosage: 100 MG, 1 IN 1 D, PO
     Route: 048
     Dates: start: 20120612
  2. CIALIS (TADALAFIL) [Concomitant]
  3. ACYCLOVIR (ACICLOVIR) [Concomitant]
  4. SIMVASTATINI (SIMVASTATIN) [Concomitant]
  5. ATENOLOL (ATENOLOL) [Concomitant]
  6. PRILOSEC (OMEPRAZOLE) [Concomitant]
  7. MUCUS RELIEF (GUAIFENESIN) [Concomitant]

REACTIONS (1)
  - Unevaluable event [None]
